FAERS Safety Report 9049872 (Version 1)
Quarter: 2013Q1

REPORT INFORMATION
  Report Type: Spontaneous
  Country: US (occurrence: US)
  Receive Date: 20130205
  Receipt Date: 20130205
  Transmission Date: 20140127
  Serious: No
  Sender: FDA-Public Use
  Company Number: US-PFIZER INC-2013044825

PATIENT
  Age: 35 Year
  Sex: Female
  Weight: 71.7 kg

DRUGS (7)
  1. CELEBREX [Suspect]
     Indication: INFLAMMATION
     Dosage: 100 MG, 2X/DAY
     Route: 048
     Dates: start: 201211
  2. CELEBREX [Suspect]
     Indication: ARTHRITIS
     Dosage: 100 MG, 2X/DAY
     Route: 048
     Dates: start: 201301, end: 201301
  3. CELEBREX [Suspect]
     Dosage: 100 MG, 2X/DAY
     Route: 048
     Dates: start: 201301, end: 201301
  4. MUCINEX D [Concomitant]
     Dosage: UNK
  5. AMOX TR-K CLV [Concomitant]
     Dosage: UNK
  6. PHENOBARBITAL [Concomitant]
     Indication: CONVULSION
     Dosage: 64.8 MG, 3X/DAY
  7. NASONEX [Concomitant]
     Dosage: UNK

REACTIONS (1)
  - Paraesthesia [Not Recovered/Not Resolved]
